FAERS Safety Report 4813020-X (Version None)
Quarter: 2005Q4

REPORT INFORMATION
  Report Type: 
  Country: None (occurrence: None)
  Receive Date: 20051028
  Receipt Date: 20050603
  Transmission Date: 20060501
  Serious: No
  Sender: FDA-Public Use
  Company Number: US-GLAXOSMITHKLINE-A0561156A

PATIENT
  Age: 18 Year
  Sex: Male

DRUGS (3)
  1. ADVAIR DISKUS 100/50 [Suspect]
     Indication: ASTHMA
     Route: 055
     Dates: start: 20050526
  2. ALLEGRA [Concomitant]
  3. ALBUTEROL [Concomitant]
     Route: 065

REACTIONS (3)
  - COUGH [None]
  - DYSPNOEA [None]
  - MIDDLE INSOMNIA [None]
